FAERS Safety Report 20642322 (Version 1)
Quarter: 2022Q1

REPORT INFORMATION
  Report Type: Spontaneous
  Country: US (occurrence: US)
  Receive Date: 20220328
  Receipt Date: 20220328
  Transmission Date: 20220423
  Serious: Yes (Death, Other)
  Sender: FDA-Public Use
  Company Number: US-PTx-2022000007

PATIENT
  Age: 49 Year
  Sex: Female
  Weight: 104 kg

DRUGS (1)
  1. LEUKINE [Suspect]
     Active Substance: SARGRAMOSTIM
     Indication: White blood cell count decreased
     Dosage: 500 MCG DAILY
     Route: 065

REACTIONS (8)
  - White blood cell count increased [Fatal]
  - Platelet count decreased [Fatal]
  - Epistaxis [Fatal]
  - Systemic lupus erythematosus [Fatal]
  - Hypothermia [Fatal]
  - Apnoea [Fatal]
  - Unresponsive to stimuli [Fatal]
  - Cardiac arrest [Fatal]
